FAERS Safety Report 6843974-1 (Version None)
Quarter: 2010Q3

REPORT INFORMATION
  Report Type: 
  Country: None (occurrence: None)
  Receive Date: 20100715
  Receipt Date: 20100707
  Transmission Date: 20110219
  Serious: Yes (Hospitalization)
  Sender: FDA-Public Use
  Company Number: US-JNJFOC-20100702470

PATIENT
  Sex: Female
  Weight: 54.43 kg

DRUGS (10)
  1. FENTANYL-100 [Suspect]
     Indication: BACK PAIN
     Route: 062
  2. FENTANYL-100 [Suspect]
     Route: 062
  3. UNSPECIFIED FENTANYL TRANSDERMAL PATCH [Suspect]
     Indication: BACK PAIN
     Route: 062
  4. UNSPECIFIED FENTANYL TRANSDERMAL PATCH [Suspect]
     Route: 062
  5. UNSPECIFIED FENTANYL TRANSDERMAL PATCH [Suspect]
     Route: 062
  6. UNSPECIFIED FENTANYL TRANSDERMAL PATCH [Suspect]
     Route: 062
  7. UNSPECIFIED FENTANYL TRANSDERMAL PATCH [Suspect]
     Route: 062
  8. UNSPECIFIED FENTANYL TRANSDERMAL PATCH [Suspect]
     Route: 062
  9. FENTANYL-100 [Suspect]
     Dosage: NDC:0781-7242-55
     Route: 062
  10. UNKNOWN MEDICATION [Concomitant]
     Route: 065

REACTIONS (3)
  - BACK DISORDER [None]
  - DRUG DOSE OMISSION [None]
  - PRODUCT QUALITY ISSUE [None]
